FAERS Safety Report 13359772 (Version 3)
Quarter: 2017Q2

REPORT INFORMATION
  Report Type: Report from Study
  Country: US (occurrence: US)
  Receive Date: 20170322
  Receipt Date: 20170516
  Transmission Date: 20170830
  Serious: Yes (Other)
  Sender: FDA-Public Use
  Company Number: US-PFIZER INC-2016552695

PATIENT
  Age: 62 Year
  Sex: Female

DRUGS (4)
  1. IBRANCE [Suspect]
     Active Substance: PALBOCICLIB
     Dosage: 100 MG, DAILY
     Route: 048
     Dates: start: 20170405
  2. LETROZOLE. [Concomitant]
     Active Substance: LETROZOLE
     Dosage: UNK
     Dates: start: 20170405
  3. IBRANCE [Suspect]
     Active Substance: PALBOCICLIB
     Indication: BREAST CANCER METASTATIC
     Dosage: 125 MG, DAILY
     Route: 048
     Dates: start: 20161118, end: 201703
  4. IBRANCE [Suspect]
     Active Substance: PALBOCICLIB
     Indication: BREAST CANCER
     Dosage: 125 MG, DAILY
     Route: 048
     Dates: start: 20170331, end: 20170404

REACTIONS (8)
  - Viral upper respiratory tract infection [Recovered/Resolved]
  - Hypotension [Unknown]
  - Intentional product use issue [Unknown]
  - Dry mouth [Unknown]
  - Body temperature increased [Unknown]
  - White blood cell count decreased [Recovering/Resolving]
  - Drug dose omission [Unknown]
  - Hot flush [Recovered/Resolved]
